FAERS Safety Report 9666028 (Version 1)
Quarter: 2013Q4

REPORT INFORMATION
  Report Type: Spontaneous
  Country: US (occurrence: US)
  Receive Date: 20131104
  Receipt Date: 20131104
  Transmission Date: 20140711
  Serious: No
  Sender: FDA-Public Use
  Company Number: US-PFIZER INC-2013311741

PATIENT
  Age: 74 Year
  Sex: Female

DRUGS (3)
  1. LIPITOR [Suspect]
     Dosage: UNK
  2. ZOCOR [Suspect]
     Dosage: UNK
  3. VALTREX [Suspect]
     Dosage: UNK

REACTIONS (4)
  - Drug ineffective [Unknown]
  - Aphthous stomatitis [Unknown]
  - Blister [Recovered/Resolved]
  - Sinus disorder [Unknown]
